FAERS Safety Report 18151492 (Version 4)
Quarter: 2020Q4

REPORT INFORMATION
  Report Type: Report from Study
  Country: CA (occurrence: CA)
  Receive Date: 20200814
  Receipt Date: 20201123
  Transmission Date: 20210113
  Serious: Yes (Hospitalization)
  Sender: FDA-Public Use
  Company Number: CA-JNJFOC-20200805485

PATIENT
  Age: 69 Year
  Sex: Female
  Weight: 58.5 kg

DRUGS (2)
  1. STELARA [Suspect]
     Active Substance: USTEKINUMAB
     Route: 058
  2. STELARA [Suspect]
     Active Substance: USTEKINUMAB
     Indication: CROHN^S DISEASE
     Dosage: ON 01-SEP-2020, PATIENT RECEIVED 15TH DOSE OF 90 MG.
     Route: 058
     Dates: start: 20180709

REACTIONS (8)
  - Off label use [Unknown]
  - Fall [Unknown]
  - Hospitalisation [Unknown]
  - Crohn^s disease [Recovering/Resolving]
  - Product use issue [Unknown]
  - Dizziness [Unknown]
  - Faeces discoloured [Recovered/Resolved]
  - Balance disorder [Unknown]

NARRATIVE: CASE EVENT DATE: 2020
